FAERS Safety Report 5145590-9 (Version None)
Quarter: 2006Q4

REPORT INFORMATION
  Report Type: 
  Country: None (occurrence: None)
  Receive Date: 20061107
  Receipt Date: 20061030
  Transmission Date: 20070319
  Serious: Yes (Hospitalization)
  Sender: FDA-Public Use
  Company Number: JP-MERCK-0611USA00772

PATIENT
  Age: 76 Year
  Sex: Male

DRUGS (3)
  1. FOSAMAX [Suspect]
     Indication: OSTEOPOROSIS
     Route: 048
     Dates: start: 20060919
  2. FOSAMAX [Suspect]
     Indication: MULTIPLE FRACTURES
     Route: 048
     Dates: start: 20060919
  3. [THERAPY UNSPECIFIED] [Suspect]
     Indication: MUSCULOSKELETAL PAIN
     Route: 065

REACTIONS (1)
  - SUBILEUS [None]
